FAERS Safety Report 9486576 (Version 1)
Quarter: 2013Q3

REPORT INFORMATION
  Report Type: Spontaneous
  Country: US (occurrence: None)
  Receive Date: 20130827
  Receipt Date: 20130827
  Transmission Date: 20140515
  Serious: Yes (Disabling)
  Sender: FDA-Public Use
  Company Number: None

PATIENT
  Age: 36 Year
  Sex: Female
  Weight: 61.24 kg

DRUGS (4)
  1. SEROQUEL 200MG ASTRAZENECA [Suspect]
     Indication: SCHIZOPHRENIA
     Route: 048
     Dates: start: 20050601, end: 20111101
  2. SEROQUEL 200MG ASTRAZENECA [Suspect]
     Indication: BIPOLAR DISORDER
     Route: 048
     Dates: start: 20050601, end: 20111101
  3. SEROQUEL 200MG ASTRAZENECA [Suspect]
     Indication: SCHIZOAFFECTIVE DISORDER
     Route: 048
     Dates: start: 20050601, end: 20111101
  4. ALEVE-NAPROXEN [Concomitant]

REACTIONS (2)
  - Pituitary tumour benign [None]
  - Product quality issue [None]
